FAERS Safety Report 14848102 (Version 3)
Quarter: 2019Q2

REPORT INFORMATION
  Report Type: Spontaneous
  Country: US (occurrence: US)
  Receive Date: 20180504
  Receipt Date: 20190423
  Transmission Date: 20190711
  Serious: Yes (Life-Threatening, Disabling, Other)
  Sender: FDA-Public Use
  Company Number: US-009507513-1804USA011440

PATIENT
  Sex: Male

DRUGS (10)
  1. PLAQUENIL [Concomitant]
     Active Substance: HYDROXYCHLOROQUINE SULFATE
     Dosage: UNK
  2. PEGINTRON [Suspect]
     Active Substance: PEGINTERFERON ALFA-2B
     Indication: HEPATITIS C
     Dosage: UNK, PEN INJECTION
     Dates: start: 2005, end: 2006
  3. FAMOTIDINE. [Concomitant]
     Active Substance: FAMOTIDINE
     Dosage: 40 MILLIGRAM, BID
     Route: 048
  4. NIFEDIPINE. [Concomitant]
     Active Substance: NIFEDIPINE
     Dosage: 30 MILLIGRAM, QD
     Route: 048
  5. AMITRIPTYLINE HYDROCHLORIDE. [Concomitant]
     Active Substance: AMITRIPTYLINE HYDROCHLORIDE
     Dosage: 25 MILLIGRAM, HS
     Route: 048
  6. LUNESTA [Concomitant]
     Active Substance: ESZOPICLONE
     Dosage: 1 TAB, PRN, QHS
     Route: 048
  7. REBETOL [Suspect]
     Active Substance: RIBAVIRIN
     Indication: HEPATITIS C
     Dosage: UNK
     Route: 048
     Dates: start: 2005, end: 2006
  8. PREDNISONE. [Concomitant]
     Active Substance: PREDNISONE
     Dosage: UNK
     Route: 048
  9. XARELTO [Concomitant]
     Active Substance: RIVAROXABAN
     Dosage: 20 MILLIGRAM, QD
     Route: 048
  10. CHOLECALCIFEROL [Concomitant]
     Active Substance: CHOLECALCIFEROL
     Dosage: 1000 INTERNATIONAL UNIT, QD
     Route: 048

REACTIONS (53)
  - Decreased activity [Unknown]
  - Emotional distress [Unknown]
  - Hypoacusis [Unknown]
  - Asthenia [Unknown]
  - Headache [Unknown]
  - Alopecia [Unknown]
  - Cholecystectomy [Not Recovered/Not Resolved]
  - Hepatitis [Unknown]
  - Increased tendency to bruise [Unknown]
  - Restrictive pulmonary disease [Unknown]
  - Heart rate abnormal [Unknown]
  - Gastritis [Unknown]
  - Thirst [Unknown]
  - Dyspepsia [Unknown]
  - Rash [Unknown]
  - Sjogren^s syndrome [Not Recovered/Not Resolved]
  - Apnoea [Unknown]
  - Gastrooesophageal reflux disease [Unknown]
  - Malaise [Not Recovered/Not Resolved]
  - Cutaneous lupus erythematosus [Not Recovered/Not Resolved]
  - Mixed connective tissue disease [Unknown]
  - Hyperhidrosis [Unknown]
  - Dyspnoea [Not Recovered/Not Resolved]
  - Rheumatoid arthritis [Not Recovered/Not Resolved]
  - Systemic lupus erythematosus [Unknown]
  - Haemorrhagic diathesis [Unknown]
  - Limb injury [Unknown]
  - Joint stiffness [Not Recovered/Not Resolved]
  - Tooth disorder [Unknown]
  - Hypertension [Unknown]
  - Nausea [Not Recovered/Not Resolved]
  - Raynaud^s phenomenon [Not Recovered/Not Resolved]
  - Thrombosis [Unknown]
  - Temperature intolerance [Unknown]
  - Balance disorder [Unknown]
  - Gingival disorder [Unknown]
  - Hypoaesthesia [Unknown]
  - Rash generalised [Not Recovered/Not Resolved]
  - Arthralgia [Not Recovered/Not Resolved]
  - Dyspepsia [Unknown]
  - Pulmonary thrombosis [Not Recovered/Not Resolved]
  - Pulmonary hypertension [Unknown]
  - Dyspnoea exertional [Unknown]
  - Neuropathy peripheral [Unknown]
  - Immunodeficiency [Unknown]
  - Antiphospholipid syndrome [Unknown]
  - Fatigue [Unknown]
  - Cardiovascular disorder [Unknown]
  - Skin cancer [Unknown]
  - Sleep apnoea syndrome [Unknown]
  - Pain [Unknown]
  - Chest pain [Unknown]
  - Pyrexia [Unknown]

NARRATIVE: CASE EVENT DATE: 2017
